FAERS Safety Report 7779289-7 (Version None)
Quarter: 2011Q3

REPORT INFORMATION
  Report Type: 
  Country: None (occurrence: None)
  Receive Date: 20110926
  Receipt Date: 20110915
  Transmission Date: 20111222
  Serious: Yes (Other)
  Sender: FDA-Public Use
  Company Number: US-ASTRAZENECA-2010SE39232

PATIENT
  Age: 87 Year
  Sex: Female
  Weight: 74.8 kg

DRUGS (8)
  1. ARICEPT [Concomitant]
     Indication: DEMENTIA
  2. PRILOSEC [Suspect]
     Route: 048
  3. NAMENDA [Concomitant]
     Indication: DEMENTIA
  4. TYLENOL-500 [Concomitant]
  5. METOPROLOL SUCCINATE [Suspect]
     Indication: HYPERTENSION
     Route: 048
     Dates: start: 20070101
  6. SEROQUEL [Concomitant]
     Indication: HALLUCINATION
     Route: 048
  7. THIAZIDE [Concomitant]
     Indication: HYPERTENSION
  8. RISPERIDONE [Concomitant]
     Indication: HALLUCINATION

REACTIONS (6)
  - CARDIAC DISCOMFORT [None]
  - DYSPNOEA [None]
  - PALPITATIONS [None]
  - VISION BLURRED [None]
  - TREMOR [None]
  - CHEST PAIN [None]
